FAERS Safety Report 9607435 (Version 1)
Quarter: 2013Q4

REPORT INFORMATION
  Report Type: Spontaneous
  Country: US (occurrence: None)
  Receive Date: 20131007
  Receipt Date: 20131007
  Transmission Date: 20140711
  Serious: No
  Sender: FDA-Public Use
  Company Number: None

PATIENT
  Sex: Male

DRUGS (1)
  1. METHYLPHENIDATE [Suspect]
     Route: 048
     Dates: start: 20111031, end: 20131003

REACTIONS (2)
  - Drug effect decreased [None]
  - Product substitution issue [None]
